FAERS Safety Report 19491269 (Version 1)
Quarter: 2021Q3

REPORT INFORMATION
  Report Type: Spontaneous
  Country: NL (occurrence: NL)
  Receive Date: 20210705
  Receipt Date: 20210705
  Transmission Date: 20211014
  Serious: Yes (Other)
  Sender: FDA-Public Use
  Company Number: NL-STRIDES ARCOLAB LIMITED-2021SP007230

PATIENT
  Age: 62 Year
  Sex: Male

DRUGS (7)
  1. SORAFENIB [Interacting]
     Active Substance: SORAFENIB
     Dosage: 200 MILLIGRAM, BID
     Route: 065
     Dates: start: 201802
  2. SORAFENIB [Interacting]
     Active Substance: SORAFENIB
     Indication: METASTASES TO LUNG
     Dosage: 200MG IN THE MORNING AND 400MG IN THE EVENING
     Route: 065
     Dates: start: 201712
  3. TACROLIMUS. [Interacting]
     Active Substance: TACROLIMUS
     Dosage: 4 MILLIGRAM
     Route: 065
     Dates: start: 201708
  4. SORAFENIB [Interacting]
     Active Substance: SORAFENIB
     Dosage: 300 MILLIGRAM PER DAY
     Route: 065
     Dates: start: 201802, end: 201805
  5. TACROLIMUS. [Suspect]
     Active Substance: TACROLIMUS
     Indication: LIVER TRANSPLANT
     Dosage: UNK
     Route: 065
     Dates: start: 2015
  6. TACROLIMUS. [Interacting]
     Active Substance: TACROLIMUS
     Dosage: 3 MILLIGRAM, QD
     Route: 065
     Dates: start: 2017
  7. SORAFENIB [Interacting]
     Active Substance: SORAFENIB
     Indication: HEPATOCELLULAR CARCINOMA
     Dosage: 200 MILLIGRAM, BID
     Route: 065
     Dates: start: 201706

REACTIONS (3)
  - Drug interaction [Unknown]
  - Drug level decreased [Unknown]
  - Hepatotoxicity [Unknown]
